FAERS Safety Report 8872114 (Version 3)
Quarter: 2013Q1

REPORT INFORMATION
  Report Type: Report from Study
  Country: JP (occurrence: JP)
  Receive Date: 20121030
  Receipt Date: 20130305
  Transmission Date: 20140127
  Serious: Yes (Other)
  Sender: FDA-Public Use
  Company Number: JP-009507513-1210JPN012959

PATIENT
  Age: 20 Year
  Sex: Female
  Weight: 73 kg

DRUGS (9)
  1. PEGINTRON [Suspect]
     Indication: CHRONIC HEPATITIS C
     Dosage: 1.5 MICROGRAM PER KILOGRAM, QW
     Route: 058
     Dates: start: 20120904, end: 20130219
  2. REBETOL [Suspect]
     Indication: CHRONIC HEPATITIS C
     Dosage: 600 MG, QD
     Route: 048
     Dates: start: 20120904, end: 20121022
  3. REBETOL [Suspect]
     Dosage: 400 MG, QD
     Route: 048
     Dates: start: 20121023, end: 20121112
  4. REBETOL [Suspect]
     Dosage: 600 MG, QD
     Route: 048
     Dates: start: 20121113, end: 20130219
  5. TELAVIC [Suspect]
     Indication: CHRONIC HEPATITIS C
     Dosage: 1500MG, QD
     Route: 048
     Dates: start: 20120904, end: 20121210
  6. VOLTAREN [Concomitant]
     Indication: PROPHYLAXIS
     Dosage: 25 MG, PRN,DAILY DOSE UNKNOWN
     Route: 054
     Dates: start: 20120904
  7. FEBURIC [Concomitant]
     Indication: HYPERURICAEMIA
     Dosage: 20 MG, QD
     Route: 048
     Dates: start: 20120907
  8. FEBURIC [Concomitant]
     Dosage: DAILY DOSE UNKNOWN
     Route: 048
     Dates: start: 20121016, end: 20121224
  9. XYZAL [Concomitant]
     Indication: RASH
     Dosage: 5 MG, QD, FORMULATION:POR
     Route: 048
     Dates: start: 20120915, end: 20120925

REACTIONS (2)
  - Hyperuricaemia [Recovering/Resolving]
  - Anaemia [Recovered/Resolved]
